FAERS Safety Report 15034835 (Version 1)
Quarter: 2018Q2

REPORT INFORMATION
  Report Type: Spontaneous
  Country: US (occurrence: US)
  Receive Date: 20180620
  Receipt Date: 20180620
  Transmission Date: 20180711
  Serious: No
  Sender: FDA-Public Use
  Company Number: US-ELI_LILLY_AND_COMPANY-US201805010222

PATIENT
  Age: 58 Year
  Sex: Female

DRUGS (4)
  1. HUMALOG KWIKPEN [Suspect]
     Active Substance: INSULIN LISPRO
     Dosage: UNK, PRN (TID)
     Route: 065
  2. LANTUS [Concomitant]
     Active Substance: INSULIN GLARGINE
     Indication: TYPE 2 DIABETES MELLITUS
     Dosage: 40 U, EACH MORNING
  3. LANTUS [Concomitant]
     Active Substance: INSULIN GLARGINE
     Dosage: 50 U, DAILY (AT NIGHT)
  4. HUMALOG KWIKPEN [Suspect]
     Active Substance: INSULIN LISPRO
     Indication: PRODUCT USED FOR UNKNOWN INDICATION
     Dosage: UNK, PRN (TID)
     Route: 065

REACTIONS (4)
  - Injection site bruising [Recovering/Resolving]
  - Injection site induration [Unknown]
  - Injection site haemorrhage [Recovering/Resolving]
  - Injection site mass [Recovering/Resolving]

NARRATIVE: CASE EVENT DATE: 20180521
